FAERS Safety Report 26034360 (Version 1)
Quarter: 2025Q4

REPORT INFORMATION
  Report Type: Spontaneous
  Country: EU (occurrence: EU)
  Receive Date: 20251112
  Receipt Date: 20251112
  Transmission Date: 20260118
  Serious: Yes (Hospitalization, Other)
  Sender: AUROBINDO
  Company Number: EU-RBHC-20-25-PRT-RB-0022894

PATIENT
  Age: 45 Year
  Sex: Male

DRUGS (7)
  1. IBUPROFEN [Suspect]
     Active Substance: IBUPROFEN
     Indication: Pericarditis
     Dosage: UNK
     Route: 065
  2. IBUPROFEN [Suspect]
     Active Substance: IBUPROFEN
     Indication: Pericardial effusion
  3. IBUPROFEN [Suspect]
     Active Substance: IBUPROFEN
     Indication: Pleural effusion
  4. COLCHICINE [Suspect]
     Active Substance: COLCHICINE
     Indication: Pericarditis
     Dosage: UNK
     Route: 065
  5. COLCHICINE [Suspect]
     Active Substance: COLCHICINE
     Indication: Pericardial effusion
  6. COLCHICINE [Suspect]
     Active Substance: COLCHICINE
     Indication: Pleural effusion
  7. FUROSEMIDE [Concomitant]
     Active Substance: FUROSEMIDE
     Indication: Product used for unknown indication
     Dosage: UNK
     Route: 065

REACTIONS (16)
  - Pericarditis constrictive [Recovering/Resolving]
  - Pericardial fibrosis [Recovering/Resolving]
  - Ventricular septal defect [Recovering/Resolving]
  - Myocarditis [Recovering/Resolving]
  - Ascites [Recovering/Resolving]
  - Pericarditis adhesive [Recovering/Resolving]
  - Hyperbilirubinaemia [Recovering/Resolving]
  - Right ventricular failure [Recovered/Resolved]
  - Abdominal discomfort [Recovering/Resolving]
  - Orthopnoea [Recovering/Resolving]
  - Oedema peripheral [Recovering/Resolving]
  - Fatigue [Recovering/Resolving]
  - Jugular vein distension [Recovering/Resolving]
  - Peripheral swelling [Recovering/Resolving]
  - Fluid retention [Recovering/Resolving]
  - Drug ineffective [Not Recovered/Not Resolved]
